FAERS Safety Report 24982501 (Version 8)
Quarter: 2025Q4

REPORT INFORMATION
  Report Type: Spontaneous
  Country: US (occurrence: US)
  Receive Date: 20250218
  Receipt Date: 20251211
  Transmission Date: 20260117
  Serious: Yes (Other)
  Sender: PFIZER
  Company Number: US-PFIZER INC-202500015549

PATIENT
  Age: 61 Year
  Sex: Female
  Weight: 75 kg

DRUGS (4)
  1. IBRANCE [Suspect]
     Active Substance: PALBOCICLIB
     Indication: Neoplasm malignant
     Dosage: 75 MG, 3 WEEKS ON AND 1 WEEK OFF/75MG TABLET, 1 DAILY ON DAYS 1-21 EVERY 28 DAYS
     Route: 048
     Dates: start: 201911
  2. IBRANCE [Suspect]
     Active Substance: PALBOCICLIB
     Indication: Breast cancer stage IV
     Dosage: UNK, EVERY 4 WEEKS
  3. IBRANCE [Suspect]
     Active Substance: PALBOCICLIB
     Dosage: UNK, 3 WEEKS OF PILLS FOLLOWED BY 2 WEEKS OFF
  4. LETROZOLE [Concomitant]
     Active Substance: LETROZOLE
     Dosage: UNK
     Dates: start: 201911

REACTIONS (3)
  - Neutropenia [Recovered/Resolved]
  - White blood cell count decreased [Recovered/Resolved]
  - Product dose omission in error [Unknown]
